FAERS Safety Report 4384896-8 (Version None)
Quarter: 2004Q2

REPORT INFORMATION
  Report Type: 
  Country: None (occurrence: None)
  Receive Date: 20040622
  Receipt Date: 20040610
  Transmission Date: 20050107
  Serious: Yes (Hospitalization)
  Sender: FDA-Public Use
  Company Number: DE-JNJFOC-20040603232

PATIENT
  Age: 62 Year
  Sex: Female

DRUGS (9)
  1. ABCIXIMAB (ABCIXIMAB) INJECTION [Suspect]
     Indication: ANTICOAGULANT THERAPY
     Dosage: INTRAVENOUS
     Route: 042
  2. CLOZARIL [Suspect]
     Indication: SCHIZOPHRENIA
     Dosage: 200 MG, 1 IN 1 DAY, ORAL
     Route: 048
     Dates: start: 20040216
  3. THYROXINE (LEVOTHYROXINE SODIUM) [Concomitant]
  4. ASPIRIN [Concomitant]
  5. GLIMEPIRIDE [Concomitant]
  6. HYOSCINE (HYOSCINE) [Concomitant]
  7. LANTUS [Concomitant]
  8. PERINDOPRIL (PERINDOPRIL) [Concomitant]
  9. METFORMIN HCL [Concomitant]

REACTIONS (7)
  - DRUG INTERACTION [None]
  - HYPERGLYCAEMIA [None]
  - HYPERTENSION [None]
  - HYPONATRAEMIA [None]
  - MYOCARDIAL INFARCTION [None]
  - PLATELET COUNT DECREASED [None]
  - SINUS TACHYCARDIA [None]
